FAERS Safety Report 7397332-4 (Version None)
Quarter: 2011Q2

REPORT INFORMATION
  Report Type: 
  Country: None (occurrence: None)
  Receive Date: 20110406
  Receipt Date: 20110328
  Transmission Date: 20111010
  Serious: Yes (Life-Threatening, Hospitalization)
  Sender: FDA-Public Use
  Company Number: FR-PFIZER INC-2011073939

PATIENT
  Age: 84 Year
  Sex: Female

DRUGS (15)
  1. TOPALGIC [Concomitant]
     Dosage: 200 MG
     Route: 048
     Dates: start: 20101123, end: 20101126
  2. COVERSYL [Concomitant]
     Dosage: 2.5 MG DAILY
     Route: 048
  3. PHYSIOTENS [Concomitant]
     Dosage: 0.4 MG DAILY
     Route: 048
  4. MYOLASTAN [Concomitant]
     Dosage: 1 DF, UNK
     Route: 048
     Dates: start: 20101125, end: 20101213
  5. NEBIVOLOL [Concomitant]
     Dosage: 5 MG DAILY
     Route: 048
  6. LOGIRENE [Concomitant]
     Dosage: 1 DF, UNK
     Route: 048
  7. ACETAMINOPHEN [Concomitant]
     Dosage: 4 G
     Route: 048
     Dates: end: 20101213
  8. PRADAXA [Suspect]
     Indication: THROMBOSIS PROPHYLAXIS
     Dosage: 75 MG, 2X/DAY
     Route: 048
     Dates: start: 20101115, end: 20101126
  9. INIPOMP [Suspect]
     Dosage: 40 MG, 1X/DAY
     Route: 048
  10. SPECIAFOLDINE [Concomitant]
     Dosage: 5 MG, UNK
     Route: 048
     Dates: start: 20101123, end: 20101213
  11. URBANYL [Concomitant]
     Dosage: 20 MG
     Route: 048
     Dates: end: 20101126
  12. SPECIAFOLDINE [Concomitant]
     Dosage: 10 MG, UNK
  13. TRIMEBUTINE [Concomitant]
     Dosage: 300 MG DAIY
     Route: 048
     Dates: end: 20101213
  14. FUMAFER [Concomitant]
     Dosage: 2 DF, UNK
     Route: 048
     Dates: end: 20101213
  15. ALLOPURINOL [Concomitant]
     Dosage: 100 MG, 1X/DAY
     Route: 048

REACTIONS (2)
  - DRUG INEFFECTIVE [None]
  - DEEP VEIN THROMBOSIS [None]
